FAERS Safety Report 24628365 (Version 1)
Quarter: 2024Q4

REPORT INFORMATION
  Report Type: Spontaneous
  Country: US (occurrence: US)
  Receive Date: 20241117
  Receipt Date: 20241117
  Transmission Date: 20250115
  Serious: No
  Sender: SANOFI AVENTIS
  Company Number: US-SA-2024SA329214

PATIENT
  Age: 70 Year
  Sex: Female
  Weight: 72.27 kg

DRUGS (1)
  1. REZUROCK [Suspect]
     Active Substance: BELUMOSUDIL
     Indication: Graft versus host disease
     Dosage: 200MG, QD
     Route: 048
     Dates: start: 20220527

REACTIONS (1)
  - Productive cough [Unknown]
